FAERS Safety Report 17390685 (Version 20)
Quarter: 2025Q1

REPORT INFORMATION
  Report Type: Report from Study
  Country: US (occurrence: US)
  Receive Date: 20200207
  Receipt Date: 20250320
  Transmission Date: 20250408
  Serious: Yes (Hospitalization, Other)
  Sender: TAKEDA
  Company Number: US-SHIRE-US202004184

PATIENT
  Age: 74 Year
  Sex: Female
  Weight: 50 kg

DRUGS (28)
  1. HUMAN IMMUNOGLOBULIN G [Suspect]
     Active Substance: HUMAN IMMUNOGLOBULIN G
     Indication: Immunodeficiency common variable
     Dosage: UNK UNK, Q6WEEKS
     Dates: start: 20170501
  2. HUMAN IMMUNOGLOBULIN G [Suspect]
     Active Substance: HUMAN IMMUNOGLOBULIN G
     Dosage: 400 MILLIGRAM/KILOGRAM, Q6WEEKS
     Dates: start: 20170502
  3. DIPHENHYDRAMINE [Concomitant]
     Active Substance: DIPHENHYDRAMINE
  4. FEMRING [Concomitant]
     Active Substance: ESTRADIOL ACETATE
  5. EPINEPHRINE [Concomitant]
     Active Substance: EPINEPHRINE
  6. SODIUM CHLORIDE [Concomitant]
     Active Substance: SODIUM CHLORIDE
  7. QUERCETIN DIHYDRATE [Concomitant]
     Active Substance: QUERCETIN DIHYDRATE
  8. COLLAGENASE [Concomitant]
     Active Substance: COLLAGENASE CLOSTRIDIUM HISTOLYTICUM
  9. ACETAMINOPHEN [Concomitant]
     Active Substance: ACETAMINOPHEN
  10. IRBESARTAN AND HYDROCHLOROTHIAZIDE [Concomitant]
     Active Substance: HYDROCHLOROTHIAZIDE\IRBESARTAN
  11. IBUPROFEN [Concomitant]
     Active Substance: IBUPROFEN
  12. CELEXA [Concomitant]
     Active Substance: CITALOPRAM HYDROBROMIDE
  13. VITAMIN B12 [Concomitant]
     Active Substance: CYANOCOBALAMIN
  14. NORETHINDRONE ACETATE [Concomitant]
     Active Substance: NORETHINDRONE ACETATE
  15. LIDOCAINE [Concomitant]
     Active Substance: LIDOCAINE
  16. VALACYCLOVIR HYDROCHLORIDE [Concomitant]
     Active Substance: VALACYCLOVIR HYDROCHLORIDE
  17. ZITHROMAX [Concomitant]
     Active Substance: AZITHROMYCIN DIHYDRATE
  18. ZANTAC [Concomitant]
     Active Substance: RANITIDINE HYDROCHLORIDE
  19. COENZYME Q10 [Concomitant]
     Active Substance: DIETARY SUPPLEMENT\UBIDECARENONE
  20. CRINONE [Concomitant]
     Active Substance: PROGESTERONE
  21. MAGNESIUM [Concomitant]
     Active Substance: MAGNESIUM
  22. AMPICILLIN TRIHYDRATE [Concomitant]
     Active Substance: AMPICILLIN TRIHYDRATE
  23. ECHINACEA [Concomitant]
     Active Substance: ECHINACEA, UNSPECIFIED
  24. AZO Bladder Control With Go Less [Concomitant]
  25. PANTOPRAZOLE SODIUM [Concomitant]
     Active Substance: PANTOPRAZOLE SODIUM
  26. GAVISCON [Concomitant]
     Active Substance: ALUMINUM HYDROXIDE\MAGNESIUM CARBONATE
  27. DIPHENHYDRAMINE HYDROCHLORIDE [Concomitant]
     Active Substance: DIPHENHYDRAMINE HYDROCHLORIDE
  28. IRBESARTAN [Concomitant]
     Active Substance: IRBESARTAN

REACTIONS (24)
  - Pneumonia [Unknown]
  - Gallbladder disorder [Unknown]
  - Loss of consciousness [Unknown]
  - Lip swelling [Unknown]
  - Blood pressure decreased [Unknown]
  - Multiple allergies [Unknown]
  - Nasopharyngitis [Unknown]
  - Urinary tract infection [Unknown]
  - Herpes virus infection [Unknown]
  - Face injury [Unknown]
  - Viral infection [Unknown]
  - Bladder disorder [Unknown]
  - Gastroenteritis viral [Unknown]
  - Incorrect dose administered [Unknown]
  - Inappropriate schedule of product administration [Unknown]
  - Swelling face [Unknown]
  - Sinusitis [Unknown]
  - Infusion site extravasation [Unknown]
  - Pain [Unknown]
  - Oedema [Unknown]
  - Vomiting [Unknown]
  - Fatigue [Unknown]
  - Chills [Unknown]
  - Headache [Unknown]

NARRATIVE: CASE EVENT DATE: 20220728
